FAERS Safety Report 6908103-4 (Version None)
Quarter: 2010Q3

REPORT INFORMATION
  Report Type: 
  Country: None (occurrence: None)
  Receive Date: 20100805
  Receipt Date: 20100802
  Transmission Date: 20110219
  Serious: Yes (Hospitalization)
  Sender: FDA-Public Use
  Company Number: US-B.I. PHARMACEUTICALS,INC./RIDGEFIELD-2010-BP-08006BP

PATIENT
  Age: 76 Year
  Sex: Male

DRUGS (14)
  1. SPIRIVA [Suspect]
     Indication: CHRONIC OBSTRUCTIVE PULMONARY DISEASE
     Dosage: 18 MCG
     Route: 055
     Dates: start: 20080101, end: 20090101
  2. SPIRIVA [Suspect]
     Indication: EMPHYSEMA
     Dosage: 18 MCG
     Route: 055
     Dates: start: 20100101, end: 20100601
  3. COMBIVENT [Concomitant]
     Indication: EMPHYSEMA
  4. COMBIVENT [Concomitant]
     Indication: CHRONIC OBSTRUCTIVE PULMONARY DISEASE
  5. ZBAR [Concomitant]
     Indication: EMPHYSEMA
  6. ZBAR [Concomitant]
     Indication: CHRONIC OBSTRUCTIVE PULMONARY DISEASE
  7. SEREVENT [Concomitant]
     Indication: EMPHYSEMA
  8. SEREVENT [Concomitant]
     Indication: CHRONIC OBSTRUCTIVE PULMONARY DISEASE
  9. ALBUTEROL [Concomitant]
     Indication: EMPHYSEMA
  10. ALBUTEROL [Concomitant]
     Indication: CHRONIC OBSTRUCTIVE PULMONARY DISEASE
  11. WARFARIN [Concomitant]
     Indication: HEART RATE IRREGULAR
  12. BENICAR [Concomitant]
     Indication: HYPERTENSION
  13. VERAPAMIL [Concomitant]
     Indication: HYPERTENSION
  14. VITAMIN TAB [Concomitant]
     Indication: SUPPLEMENTATION THERAPY

REACTIONS (4)
  - CHEILITIS [None]
  - DRUG INEFFECTIVE [None]
  - DYSPNOEA [None]
  - VISION BLURRED [None]
